FAERS Safety Report 10477573 (Version 2)
Quarter: 2014Q3

REPORT INFORMATION
  Report Type: Spontaneous
  Country: SE (occurrence: SE)
  Receive Date: 20140926
  Receipt Date: 20140929
  Transmission Date: 20150326
  Serious: Yes (Life-Threatening)
  Sender: FDA-Public Use
  Company Number: PHHY2014SE125734

PATIENT
  Age: 74 Year
  Sex: Male

DRUGS (1)
  1. TASIGNA [Suspect]
     Active Substance: NILOTINIB
     Indication: CHRONIC MYELOID LEUKAEMIA

REACTIONS (3)
  - Hypertonia [Unknown]
  - Hyperlipidaemia [Unknown]
  - Myocardial infarction [Unknown]
